FAERS Safety Report 12217589 (Version 3)
Quarter: 2016Q2

REPORT INFORMATION
  Report Type: Spontaneous
  Country: US (occurrence: US)
  Receive Date: 20160329
  Receipt Date: 20160428
  Transmission Date: 20160815
  Serious: Yes (Hospitalization)
  Sender: FDA-Public Use
  Company Number: US-HORIZON-RAV-0060-2016

PATIENT
  Age: 48 Year
  Sex: Male

DRUGS (16)
  1. RAVICTI [Suspect]
     Active Substance: GLYCEROL PHENYLBUTYRATE
     Indication: LENNOX-GASTAUT SYNDROME
     Dosage: 4.5 ML, TID
  2. CALCITONIN NASAL SPRAY [Concomitant]
     Indication: OSTEOPOROSIS
  3. CALCIUM/VITAMIN D [Concomitant]
     Active Substance: CALCIUM\VITAMIN D
     Indication: OSTEOPOROSIS
  4. FISH OIL [Concomitant]
     Active Substance: FISH OIL
     Dosage: 1000 MG BID
  5. SODIUM DOCUSATE [Concomitant]
     Active Substance: DOCUSATE SODIUM
     Indication: IMPAIRED GASTRIC EMPTYING
     Dosage: ^ARI TAB^ 33.3 TID
  6. MULTIVITAMINS [Concomitant]
     Active Substance: VITAMINS
     Dosage: ONCE DAILY
  7. TOPAMAX [Concomitant]
     Active Substance: TOPIRAMATE
     Dosage: 300 MG DAILY
  8. SENNA [Concomitant]
     Active Substance: SENNA LEAF\SENNOSIDES\SENNOSIDES A AND B
     Dosage: 8.6 MG (1 TABLET IN THE MORNING, 2 TABLETS AT NIGHT)
  9. DEPAKOTE [Concomitant]
     Active Substance: DIVALPROEX SODIUM
     Dosage: 250 MG TID
  10. KEPPRA [Concomitant]
     Active Substance: LEVETIRACETAM
     Dosage: 1000 MG TID
  11. PHENOBARBITAL. [Concomitant]
     Active Substance: PHENOBARBITAL
     Indication: SEIZURE
     Dosage: 97.2 MG AT BEDTIME
  12. LACTULOSE. [Concomitant]
     Active Substance: LACTULOSE
     Dosage: 2 TABLESPOONS TID
  13. LEVOCARNITINE. [Concomitant]
     Active Substance: LEVOCARNITINE
     Indication: LENNOX-GASTAUT SYNDROME
     Dosage: 330 MG THREE TABLETS BY MOUTH
     Route: 048
  14. LEVOTHYROXINE. [Concomitant]
     Active Substance: LEVOTHYROXINE
     Indication: HYPOTHYROIDISM
     Dosage: ^125 TABLET DAILY^
  15. ZOCOR [Concomitant]
     Active Substance: SIMVASTATIN
     Indication: HYPERLIPIDAEMIA
     Dosage: 10 MG
  16. VITAMIN B WITH C [Concomitant]

REACTIONS (5)
  - Seizure [Recovered/Resolved]
  - Lethargy [Unknown]
  - Somnolence [Unknown]
  - Off label use [Unknown]
  - Drug dose omission [Unknown]
